FAERS Safety Report 15708164 (Version 4)
Quarter: 2019Q1

REPORT INFORMATION
  Report Type: Report from Study
  Country: None (occurrence: DE)
  Receive Date: 20181211
  Receipt Date: 20190227
  Transmission Date: 20190417
  Serious: Yes (Hospitalization)
  Sender: FDA-Public Use
  Company Number: DE-ABBVIE-18S-062-2582495-00

PATIENT
  Age: 79 Year
  Sex: Male
  Weight: 78 kg

DRUGS (1)
  1. DUODOPA [Suspect]
     Active Substance: CARBIDOPA\LEVODOPA
     Indication: PARKINSON^S DISEASE
     Dosage: 24H MONO THERAPY
     Route: 050
     Dates: start: 20181119

REACTIONS (6)
  - Flatulence [Recovering/Resolving]
  - Stoma site pain [Unknown]
  - Abdominal pain upper [Unknown]
  - Abdominal distension [Unknown]
  - Ileus paralytic [Recovering/Resolving]
  - Intra-abdominal fluid collection [Recovering/Resolving]

NARRATIVE: CASE EVENT DATE: 20181121
